FAERS Safety Report 22237350 (Version 3)
Quarter: 2025Q2

REPORT INFORMATION
  Report Type: Report from Study
  Country: IT (occurrence: IT)
  Receive Date: 20230421
  Receipt Date: 20250524
  Transmission Date: 20250716
  Serious: Yes (Other)
  Sender: AUROBINDO
  Company Number: IT-DSJP-DSE-2023-113486

PATIENT
  Age: 40 Year
  Sex: Female

DRUGS (2)
  1. PRAVASTATIN [Suspect]
     Active Substance: PRAVASTATIN
     Indication: Foetal growth restriction
     Dosage: 40 MILLIGRAM, ONCE A DAY
     Route: 048
  2. PRAVASTATIN [Suspect]
     Active Substance: PRAVASTATIN
     Indication: Pre-eclampsia

REACTIONS (2)
  - Premature delivery [Unknown]
  - Maternal exposure during pregnancy [Recovered/Resolved]
